FAERS Safety Report 9391339 (Version 1)
Quarter: 2013Q3

REPORT INFORMATION
  Report Type: Spontaneous
  Country: GB (occurrence: GB)
  Receive Date: 20130709
  Receipt Date: 20130709
  Transmission Date: 20140515
  Serious: Yes (Other)
  Sender: FDA-Public Use
  Company Number: GB-TEVA-416498ISR

PATIENT
  Age: 43 Year
  Sex: Female

DRUGS (5)
  1. TRAZODONE [Suspect]
     Indication: PRODUCT USED FOR UNKNOWN INDICATION
     Route: 048
  2. QUETIAPINE [Concomitant]
  3. ALLOPURINOL [Concomitant]
  4. CITALOPRAM [Concomitant]
  5. PREGABALIN [Concomitant]

REACTIONS (1)
  - Electrocardiogram T wave inversion [Unknown]
